FAERS Safety Report 6251683-5 (Version None)
Quarter: 2009Q2

REPORT INFORMATION
  Report Type: 
  Country: None (occurrence: None)
  Receive Date: 20090630
  Receipt Date: 20090620
  Transmission Date: 20091009
  Serious: Yes (Other)
  Sender: FDA-Public Use
  Company Number: US-AVENTIS-200915443US

PATIENT
  Sex: Female

DRUGS (13)
  1. LANTUS [Suspect]
     Route: 058
  2. OPTICLIK (INSULIN INJECTION PEN) [Suspect]
  3. HUMALOG [Concomitant]
     Dosage: DOSE: PER SLIDING SCALE WITH MEALS
  4. AMIODARONE HCL [Concomitant]
  5. HYDROCHLOROTHIAZIDE [Concomitant]
     Dosage: DOSE: 1 TAB
  6. MELOXICAM [Concomitant]
     Dosage: DOSE: 1 TAB
     Dates: start: 20090601
  7. FOLBIC [Concomitant]
     Dosage: DOSE: 1 TAB
  8. WARFARIN SODIUM [Concomitant]
  9. ESTRADIOL [Concomitant]
  10. LORATADINE [Concomitant]
  11. CLONAZEPAM [Concomitant]
     Dosage: DOSE: 1 TAB
  12. ASPIRIN [Concomitant]
     Dosage: DOSE: 1 TAB
  13. EYE DROPS [Concomitant]
     Dosage: DOSE: UNK
     Route: 031

REACTIONS (4)
  - FALL [None]
  - JOINT INJURY [None]
  - LIMB INJURY [None]
  - RASH [None]
